FAERS Safety Report 23541827 (Version 1)
Quarter: 2024Q1

REPORT INFORMATION
  Report Type: Spontaneous
  Country: US (occurrence: US)
  Receive Date: 20240220
  Receipt Date: 20240220
  Transmission Date: 20240409
  Serious: No
  Sender: FDA-Public Use
  Company Number: US-ELI_LILLY_AND_COMPANY-US202402009473

PATIENT
  Age: 51 Year
  Sex: Female

DRUGS (2)
  1. TALTZ [Suspect]
     Active Substance: IXEKIZUMAB
     Indication: Psoriatic arthropathy
     Dosage: 80 MG, OTHER(EVERY TWO WEEKS)
     Route: 065
     Dates: start: 20231107
  2. TALTZ [Suspect]
     Active Substance: IXEKIZUMAB
     Indication: Rheumatoid arthritis
     Dosage: 80 MG, MONTHLY (1/M)
     Route: 065

REACTIONS (3)
  - Extra dose administered [Unknown]
  - Inappropriate schedule of product administration [Unknown]
  - Injection site erythema [Recovered/Resolved]
